FAERS Safety Report 4740234-X (Version None)
Quarter: 2005Q3

REPORT INFORMATION
  Report Type: 
  Country: None (occurrence: None)
  Receive Date: 20050729
  Receipt Date: 20050317
  Transmission Date: 20060218
  Serious: No
  Sender: FDA-Public Use
  Company Number: 2005S1002376

PATIENT

DRUGS (1)
  1. APOMORPHINE HYDROCHLORIDE (APOMORPHINE HYDROCHLORIDE) (10 MG/ML) [Suspect]
     Indication: PARKINSON'S DISEASE
     Dosage: SC
     Route: 058

REACTIONS (5)
  - CONFUSIONAL STATE [None]
  - HALLUCINATION [None]
  - HYPOTENSION [None]
  - NAUSEA [None]
  - SKIN DISORDER [None]
